FAERS Safety Report 25840770 (Version 1)
Quarter: 2025Q3

REPORT INFORMATION
  Report Type: Spontaneous
  Country: TW (occurrence: TW)
  Receive Date: 20250924
  Receipt Date: 20250924
  Transmission Date: 20251020
  Serious: Yes (Hospitalization)
  Sender: MYLAN
  Company Number: TW-MYLANLABS-2025M1080979

PATIENT
  Age: 49 Year
  Sex: Female

DRUGS (12)
  1. OXALIPLATIN [Suspect]
     Active Substance: OXALIPLATIN
     Indication: Rectal cancer stage III
     Dates: start: 2021
  2. OXALIPLATIN [Suspect]
     Active Substance: OXALIPLATIN
     Route: 065
     Dates: start: 2021
  3. OXALIPLATIN [Suspect]
     Active Substance: OXALIPLATIN
     Route: 065
     Dates: start: 2021
  4. OXALIPLATIN [Suspect]
     Active Substance: OXALIPLATIN
     Dates: start: 2021
  5. FLUOROURACIL [Suspect]
     Active Substance: FLUOROURACIL
     Indication: Rectal cancer stage III
     Dates: start: 2021
  6. FLUOROURACIL [Suspect]
     Active Substance: FLUOROURACIL
     Route: 065
     Dates: start: 2021
  7. FLUOROURACIL [Suspect]
     Active Substance: FLUOROURACIL
     Route: 065
     Dates: start: 2021
  8. FLUOROURACIL [Suspect]
     Active Substance: FLUOROURACIL
     Dates: start: 2021
  9. LEUCOVORIN [Suspect]
     Active Substance: LEUCOVORIN\LEUCOVORIN CALCIUM
     Indication: Rectal cancer stage III
     Dates: start: 2021
  10. LEUCOVORIN [Suspect]
     Active Substance: LEUCOVORIN\LEUCOVORIN CALCIUM
     Route: 065
     Dates: start: 2021
  11. LEUCOVORIN [Suspect]
     Active Substance: LEUCOVORIN\LEUCOVORIN CALCIUM
     Route: 065
     Dates: start: 2021
  12. LEUCOVORIN [Suspect]
     Active Substance: LEUCOVORIN\LEUCOVORIN CALCIUM
     Dates: start: 2021

REACTIONS (7)
  - Neuropathy peripheral [Recovering/Resolving]
  - Anxiety [Recovering/Resolving]
  - Sleep disorder [Recovered/Resolved]
  - Pain [Recovering/Resolving]
  - Angiopathy [Recovering/Resolving]
  - Productive cough [Recovering/Resolving]
  - Temperature intolerance [Recovering/Resolving]
